FAERS Safety Report 12782684 (Version 1)
Quarter: 2016Q3

REPORT INFORMATION
  Report Type: Spontaneous
  Country: US (occurrence: US)
  Receive Date: 20160923
  Receipt Date: 20160923
  Transmission Date: 20161109
  Serious: Yes (Hospitalization)
  Sender: FDA-Public Use
  Company Number: None

PATIENT
  Age: 69 Year
  Sex: Female
  Weight: 69.5 kg

DRUGS (6)
  1. AZITHROMYCIN ANHYDROUS. [Concomitant]
     Active Substance: AZITHROMYCIN ANHYDROUS
  2. CIPROFLOXIN [Concomitant]
     Active Substance: CIPROFLOXACIN
  3. LEVAQUIN [Concomitant]
     Active Substance: LEVOFLOXACIN
  4. PACLITAXEL. [Suspect]
     Active Substance: PACLITAXEL
     Dates: end: 20160825
  5. DOXORUBICIN HYDROCHLORIDE. [Suspect]
     Active Substance: DOXORUBICIN HYDROCHLORIDE
     Dosage: DOXORUBICIN HYDROCHLORIDE - DOSE REDUCED CYCLE 4
     Dates: end: 20160712
  6. CYCLOPHOSPHAMIDE. [Suspect]
     Active Substance: CYCLOPHOSPHAMIDE
     Dosage: CYCLOPHOSPHAMIDE - DOSE REDUCED CYCLE 4
     Dates: end: 20160712

REACTIONS (10)
  - Sepsis [None]
  - Pneumonia streptococcal [None]
  - Pleural effusion [None]
  - Clostridium difficile infection [None]
  - Ascites [None]
  - Hypotension [None]
  - Leukocytosis [None]
  - Hypokalaemia [None]
  - Seroma [None]
  - Anaemia [None]

NARRATIVE: CASE EVENT DATE: 20160906
